FAERS Safety Report 6726065-X (Version None)
Quarter: 2010Q2

REPORT INFORMATION
  Report Type: 
  Country: None (occurrence: None)
  Receive Date: 20100514
  Receipt Date: 20100506
  Transmission Date: 20101027
  Serious: Yes (Hospitalization)
  Sender: FDA-Public Use
  Company Number: US-AMGEN-KDC411123

PATIENT
  Age: 54 Year
  Sex: Male
  Weight: 88 kg

DRUGS (4)
  1. PANITUMUMAB [Suspect]
     Indication: PANCREATIC CARCINOMA
     Dates: start: 20091229
  2. FLUOROURACIL [Suspect]
     Dates: start: 20091229
  3. RADIATION THERAPY [Suspect]
     Dates: start: 20091229
  4. UNSPECIFIED PAIN MEDICATION [Concomitant]

REACTIONS (9)
  - ABDOMINAL PAIN [None]
  - DEHYDRATION [None]
  - DEPRESSION [None]
  - DERMATITIS ACNEIFORM [None]
  - DIZZINESS [None]
  - FATIGUE [None]
  - NAUSEA [None]
  - PERIPHERAL MOTOR NEUROPATHY [None]
  - VOMITING [None]
